FAERS Safety Report 8494085 (Version 4)
Quarter: 2012Q4

REPORT INFORMATION
  Report Type: 
  Country: US (occurrence: US)
  Receive Date: 20120404
  Receipt Date: 20120918
  Transmission Date: 20130627
  Serious: Yes (Death, Hospitalization, Other)
  Sender: FDA-Public Use
  Company Number: US-ASTRAZENECA-2012SE20233

PATIENT
  Age: 63 Year
  Sex: Female
  Weight: 95.3 kg

DRUGS (29)
  1. NEXIUM [Suspect]
     Indication: HYPERCHLORHYDRIA
     Route: 048
     Dates: start: 2002
  2. NEXIUM [Suspect]
     Indication: GASTROOESOPHAGEAL REFLUX DISEASE
     Route: 048
     Dates: start: 2002
  3. NEXIUM [Suspect]
     Indication: ACQUIRED OESOPHAGEAL WEB
     Route: 048
     Dates: start: 2002
  4. NEXIUM [Suspect]
     Indication: HYPERCHLORHYDRIA
     Route: 048
  5. NEXIUM [Suspect]
     Indication: GASTROOESOPHAGEAL REFLUX DISEASE
     Route: 048
  6. NEXIUM [Suspect]
     Indication: ACQUIRED OESOPHAGEAL WEB
     Route: 048
  7. ZESTRIL [Suspect]
     Route: 048
  8. CRESTOR [Suspect]
     Indication: BLOOD CHOLESTEROL ABNORMAL
     Route: 048
     Dates: start: 2007
  9. VITAMIN C [Concomitant]
  10. VITAMIN D [Concomitant]
  11. PAXIL [Concomitant]
  12. LOSARTAN [Concomitant]
  13. FELODIPINE [Concomitant]
  14. ASPIRINE [Concomitant]
  15. ENABLEX [Concomitant]
  16. EFFEXOR [Concomitant]
  17. BACTRIM [Concomitant]
  18. ACYCLOVIR [Concomitant]
  19. MYCELEX [Concomitant]
  20. TROUCH [Concomitant]
  21. ATIVAN [Concomitant]
     Dosage: 3 TIMES A DAY AS NEEDED
  22. LIPITOR [Concomitant]
  23. ULTRAM [Concomitant]
     Indication: PAIN
     Dosage: AS NEEDED
  24. TYLENOL [Concomitant]
  25. INDOCIN [Concomitant]
  26. ELAVIL [Concomitant]
  27. TRIAVIL [Concomitant]
  28. VOLTAREN [Concomitant]
  29. VICODIN [Concomitant]

REACTIONS (7)
  - Leukaemia [Fatal]
  - Erosive oesophagitis [Unknown]
  - Gastric disorder [Unknown]
  - Hiatus hernia [Unknown]
  - Drug hypersensitivity [Unknown]
  - Drug dose omission [Unknown]
  - Off label use [Unknown]
